FAERS Safety Report 11271372 (Version 1)
Quarter: 2015Q3

REPORT INFORMATION
  Report Type: Report from Study
  Country: DE (occurrence: DE)
  Receive Date: 20150714
  Receipt Date: 20150714
  Transmission Date: 20151125
  Serious: Yes (Hospitalization)
  Sender: FDA-Public Use
  Company Number: DE-BAXALTA-2015BLT000323

PATIENT
  Age: 46 Year
  Weight: 78 kg

DRUGS (5)
  1. OCTOCOG ALFA; BAXJECT II [Suspect]
     Active Substance: ANTIHEMOPHILIC FACTOR, HUMAN RECOMBINANT
     Indication: FACTOR VIII DEFICIENCY
  2. TRUVADA [Concomitant]
     Active Substance: EMTRICITABINE\TENOFOVIR DISOPROXIL FUMARATE
     Indication: ANTIRETROVIRAL THERAPY
     Dosage: 200/300 MG, 1-0-0
     Route: 048
     Dates: start: 20090928
  3. OCTOCOG ALFA; BAXJECT II [Suspect]
     Active Substance: ANTIHEMOPHILIC FACTOR, HUMAN RECOMBINANT
     Indication: PROPHYLAXIS
     Dosage: 2000 IU, EVERY 3 DAYS
     Route: 065
     Dates: start: 20120112
  4. KALETRA [Concomitant]
     Active Substance: LOPINAVIR\RITONAVIR
     Indication: ANTIRETROVIRAL THERAPY
     Dosage: 100/25 MG, 2-0-2
     Route: 048
     Dates: start: 20060515
  5. ARCOXIA [Concomitant]
     Active Substance: ETORICOXIB
     Indication: ANTIINFLAMMATORY THERAPY
     Dosage: 60 MG, 1 ON DEMAND
     Route: 048

REACTIONS (1)
  - Sinus disorder [Recovered/Resolved]

NARRATIVE: CASE EVENT DATE: 201505
